FAERS Safety Report 9166661 (Version 1)
Quarter: 2013Q1

REPORT INFORMATION
  Report Type: Spontaneous
  Country: FR (occurrence: FR)
  Receive Date: 20130315
  Receipt Date: 20130315
  Transmission Date: 20140127
  Serious: Yes (Hospitalization)
  Sender: FDA-Public Use
  Company Number: FR-ABBOTT-13P-056-1061279-00

PATIENT
  Age: 67 Year
  Sex: Female

DRUGS (11)
  1. HUMIRA [Suspect]
     Indication: RHEUMATOID ARTHRITIS
     Route: 058
  2. CORTANCYL [Suspect]
     Indication: RHEUMATOID ARTHRITIS
     Route: 048
  3. CORTANCYL [Suspect]
     Dosage: DOSE REDUCED
  4. METOJECT [Suspect]
     Indication: RHEUMATOID ARTHRITIS
     Route: 058
     Dates: end: 201212
  5. METFORMINE [Concomitant]
     Indication: PRODUCT USED FOR UNKNOWN INDICATION
  6. CARDENSIEL [Concomitant]
     Indication: PRODUCT USED FOR UNKNOWN INDICATION
  7. INEXIUM [Concomitant]
     Indication: PRODUCT USED FOR UNKNOWN INDICATION
  8. SKENAN [Concomitant]
     Indication: PRODUCT USED FOR UNKNOWN INDICATION
  9. KLIPAL [Concomitant]
     Indication: PRODUCT USED FOR UNKNOWN INDICATION
  10. ADROVANCE [Concomitant]
     Indication: PRODUCT USED FOR UNKNOWN INDICATION
  11. CACIT VITAMINE D3 [Concomitant]
     Indication: PRODUCT USED FOR UNKNOWN INDICATION

REACTIONS (15)
  - Synovial cyst [Recovering/Resolving]
  - Mycobacterium avium complex infection [Recovering/Resolving]
  - Lung disorder [Recovering/Resolving]
  - Cytomegalovirus colitis [Unknown]
  - Pyrexia [Recovering/Resolving]
  - Hyperhidrosis [Unknown]
  - Inflammation [Recovering/Resolving]
  - Cough [Unknown]
  - Nodule [Unknown]
  - Pyrexia [Unknown]
  - Pseudofolliculitis barbae [Unknown]
  - Lymphadenopathy [Unknown]
  - Pain [Unknown]
  - Pulmonary mass [Unknown]
  - Pain [Unknown]
